FAERS Safety Report 5794940-9 (Version None)
Quarter: 2008Q2

REPORT INFORMATION
  Report Type: 
  Country: None (occurrence: None)
  Receive Date: 20080630
  Receipt Date: 20080630
  Transmission Date: 20081010
  Serious: No
  Sender: FDA-Public Use
  Company Number: None

PATIENT
  Sex: Female

DRUGS (1)
  1. LUPRON DEPOT [Suspect]
     Dosage: 11.25MG Q 3 MONTHS IM
     Route: 030

REACTIONS (2)
  - DRUG INTERACTION [None]
  - HAEMORRHAGE [None]
